FAERS Safety Report 10128416 (Version 2)
Quarter: 2014Q2

REPORT INFORMATION
  Report Type: Report from Study
  Country: ZA (occurrence: ZA)
  Receive Date: 20140428
  Receipt Date: 20140428
  Transmission Date: 20141212
  Serious: Yes (Hospitalization)
  Sender: FDA-Public Use
  Company Number: ZA-BRISTOL-MYERS SQUIBB COMPANY-19010255

PATIENT
  Age: 31 Year
  Sex: Male

DRUGS (6)
  1. STOCRIN CAPS [Suspect]
     Indication: TUBERCULOSIS
     Route: 048
     Dates: start: 20130422
  2. TENOFOVIR DF + EMTRICITABINE [Suspect]
     Indication: TUBERCULOSIS
     Route: 048
     Dates: start: 20130422
  3. ISONIAZID [Suspect]
     Indication: TUBERCULOSIS
     Route: 048
     Dates: end: 20130516
  4. SULFAMETHOXAZOLE + TRIMETHOPRIM [Concomitant]
  5. ALLERGEX [Concomitant]
  6. METRONIDAZOLE [Concomitant]

REACTIONS (2)
  - Tuberculosis [Not Recovered/Not Resolved]
  - Hyponatraemia [Not Recovered/Not Resolved]
